FAERS Safety Report 10253370 (Version 2)
Quarter: 2014Q2

REPORT INFORMATION
  Report Type: Spontaneous
  Country: US (occurrence: US)
  Receive Date: 20140623
  Receipt Date: 20140623
  Transmission Date: 20141212
  Serious: No
  Sender: FDA-Public Use
  Company Number: US-SHIONOGI, INC-2014000395

PATIENT
  Sex: Female

DRUGS (2)
  1. OSPHENA [Suspect]
     Indication: ATROPHIC VULVOVAGINITIS
     Dosage: 60 MG, QD
     Route: 065
     Dates: start: 20140225, end: 20140425
  2. OSPHENA [Suspect]
     Indication: DYSPAREUNIA

REACTIONS (2)
  - Hot flush [Unknown]
  - Hyperhidrosis [Unknown]
